FAERS Safety Report 13810375 (Version 1)
Quarter: 2017Q3

REPORT INFORMATION
  Report Type: Spontaneous
  Country: CN (occurrence: CN)
  Receive Date: 20170728
  Receipt Date: 20170728
  Transmission Date: 20171127
  Serious: Yes (Hospitalization)
  Sender: FDA-Public Use
  Company Number: CN-009507513-1707CHN010439

PATIENT
  Age: 80 Year
  Sex: Female

DRUGS (1)
  1. TIENAM [Suspect]
     Active Substance: CILASTATIN SODIUM\IMIPENEM
     Indication: PNEUMONITIS
     Dosage: 500 MG, QD
     Route: 041
     Dates: start: 20170509, end: 20170516

REACTIONS (1)
  - Tic [Recovering/Resolving]

NARRATIVE: CASE EVENT DATE: 20170516
